FAERS Safety Report 4549380-7 (Version None)
Quarter: 2005Q1

REPORT INFORMATION
  Report Type: 
  Country: None (occurrence: None)
  Receive Date: 20050106
  Receipt Date: 20041227
  Transmission Date: 20050727
  Serious: Yes (Disabling, Other)
  Sender: FDA-Public Use
  Company Number: 2004121683

PATIENT
  Sex: Male
  Weight: 80.2867 kg

DRUGS (3)
  1. DEPO-TESTOSTERONE [Suspect]
     Indication: ANDROGEN DEFICIENCY
     Dosage: 400 MG, GRADUAL/INCREASE TO 400 MG/EVERY 2 WEEKS), INTRAMUSCULAR
     Route: 030
     Dates: start: 20000101
  2. LIPITOR [Suspect]
     Indication: BLOOD CHOLESTEROL INCREASED
     Dates: start: 20020101, end: 20041101
  3. NAPROXEN [Concomitant]

REACTIONS (8)
  - ANGER [None]
  - ASTHENIA [None]
  - FAMILY STRESS [None]
  - IRRITABILITY [None]
  - MOVEMENT DISORDER [None]
  - MYALGIA [None]
  - PAIN IN EXTREMITY [None]
  - PERSONALITY CHANGE [None]
